FAERS Safety Report 25876310 (Version 1)
Quarter: 2025Q4

REPORT INFORMATION
  Report Type: Spontaneous
  Country: EU (occurrence: EU)
  Receive Date: 20251003
  Receipt Date: 20251003
  Transmission Date: 20260117
  Serious: Yes (Hospitalization, Other)
  Sender: TEVA
  Company Number: EU-DCGMA-25205779

PATIENT
  Age: 51 Year
  Sex: Male
  Weight: 87 kg

DRUGS (1)
  1. COPAXONE [Suspect]
     Active Substance: GLATIRAMER ACETATE
     Indication: Multiple sclerosis
     Route: 058

REACTIONS (5)
  - Lividity [Recovering/Resolving]
  - Cellulitis [Recovering/Resolving]
  - Abscess [Recovering/Resolving]
  - Superinfection [Recovering/Resolving]
  - Injection site necrosis [Recovering/Resolving]

NARRATIVE: CASE EVENT DATE: 20250725
